FAERS Safety Report 6179001-1 (Version None)
Quarter: 2009Q2

REPORT INFORMATION
  Report Type: 
  Country: None (occurrence: None)
  Receive Date: 20090505
  Receipt Date: 20090429
  Transmission Date: 20091009
  Serious: Yes (Life-Threatening, Hospitalization, Other)
  Sender: FDA-Public Use
  Company Number: FR-JNJFOC-20090401703

PATIENT
  Age: 28 Year
  Sex: Female

DRUGS (5)
  1. REMICADE [Suspect]
     Dosage: 5TH INFUSION
     Route: 042
  2. REMICADE [Suspect]
     Dosage: 5TH INFUSION
     Route: 042
  3. REMICADE [Suspect]
     Indication: CROHN'S DISEASE
     Dosage: INFUSIONS 1-4 ON UNSPECIFIED DATES
     Route: 042
  4. ATENOLOL [Concomitant]
     Route: 048
  5. PANTOPRAZOLE SODIUM [Concomitant]

REACTIONS (3)
  - ANAPHYLACTIC SHOCK [None]
  - ELECTROCARDIOGRAM ST SEGMENT ABNORMAL [None]
  - INFUSION RELATED REACTION [None]
